FAERS Safety Report 20949289 (Version 2)
Quarter: 2022Q4

REPORT INFORMATION
  Report Type: Spontaneous
  Country: JP (occurrence: JP)
  Receive Date: 20220613
  Receipt Date: 20221115
  Transmission Date: 20230113
  Serious: Yes (Other)
  Sender: FDA-Public Use
  Company Number: JP-ONO-2022JP015178

PATIENT
  Age: 76 Year
  Sex: Female

DRUGS (1)
  1. OPDIVO [Suspect]
     Active Substance: NIVOLUMAB
     Indication: Malignant neoplasm of unknown primary site
     Dosage: 240 MG, Q2W
     Route: 041
     Dates: start: 20220517, end: 20220531

REACTIONS (2)
  - Platelet count decreased [Recovering/Resolving]
  - Immune thrombocytopenia [Unknown]

NARRATIVE: CASE EVENT DATE: 20220531
